FAERS Safety Report 7057924-9 (Version None)
Quarter: 2010Q4

REPORT INFORMATION
  Report Type: 
  Country: None (occurrence: None)
  Receive Date: 20101022
  Receipt Date: 20101013
  Transmission Date: 20110411
  Serious: Yes (Hospitalization)
  Sender: FDA-Public Use
  Company Number: US-BAYER-201037323NA

PATIENT
  Age: 39 Year
  Sex: Female

DRUGS (1)
  1. MIRENA [Suspect]
     Indication: PRODUCT USED FOR UNKNOWN INDICATION
     Dosage: FREQUENCY:CONTINUOUS
     Route: 015
     Dates: start: 20080807, end: 20101013

REACTIONS (2)
  - DEVICE EXPULSION [None]
  - VAGINAL HAEMORRHAGE [None]
